FAERS Safety Report 7492268-2 (Version None)
Quarter: 2011Q2

REPORT INFORMATION
  Report Type: 
  Country: None (occurrence: None)
  Receive Date: 20110519
  Receipt Date: 20101216
  Transmission Date: 20111010
  Serious: No
  Sender: FDA-Public Use
  Company Number: US-NOVEN-ALL1-2010-06513

PATIENT
  Sex: Male
  Weight: 36.3 kg

DRUGS (2)
  1. DAYTRANA [Suspect]
     Indication: ATTENTION DEFICIT/HYPERACTIVITY DISORDER
     Dosage: 20 MG, 1X/DAY:QD
     Route: 062
     Dates: start: 20100901
  2. MELATONIN [Concomitant]
     Dosage: UNK
     Dates: start: 20100501

REACTIONS (5)
  - CONDUCT DISORDER [None]
  - FRUSTRATION [None]
  - APPLICATION SITE RASH [None]
  - APPLICATION SITE DRYNESS [None]
  - APPLICATION SITE ERYTHEMA [None]
